FAERS Safety Report 4520474-5 (Version None)
Quarter: 2004Q4

REPORT INFORMATION
  Report Type: 
  Country: None (occurrence: None)
  Receive Date: 20041203
  Receipt Date: 20041022
  Transmission Date: 20050328
  Serious: Yes (Death)
  Sender: FDA-Public Use
  Company Number: STA-AE-04-MTX-515

PATIENT
  Age: 68 Year
  Sex: Male

DRUGS (4)
  1. METHOTREXATE [Suspect]
     Indication: RHEUMATOID ARTHRITIS
     Dosage: 10 MG 1X PER 1 WK, ORAL
     Route: 048
     Dates: start: 20020514, end: 20020909
  2. CELEBREX [Suspect]
     Dates: start: 20010227, end: 20020909
  3. PREDNISONE [Suspect]
     Dates: start: 20020108, end: 20020909
  4. METFORMIN HCL [Concomitant]

REACTIONS (2)
  - CARDIO-RESPIRATORY ARREST [None]
  - MYOCARDIAL INFARCTION [None]
